FAERS Safety Report 23311489 (Version 3)
Quarter: 2024Q1

REPORT INFORMATION
  Report Type: Spontaneous
  Country: DE (occurrence: DE)
  Receive Date: 20231219
  Receipt Date: 20240216
  Transmission Date: 20240410
  Serious: Yes (Hospitalization, Disabling, Other)
  Sender: FDA-Public Use
  Company Number: DE-BRISTOL-MYERS SQUIBB COMPANY-2023-163381

PATIENT
  Age: 29 Year
  Sex: Female
  Weight: 60 kg

DRUGS (2)
  1. ZEPOSIA [Suspect]
     Active Substance: OZANIMOD HYDROCHLORIDE
     Indication: Multiple sclerosis
     Dosage: DOSE : UNAV.;     FREQ : UNAV.
     Route: 048
     Dates: start: 202110, end: 202204
  2. ESCITALOPRAM [Concomitant]
     Active Substance: ESCITALOPRAM OXALATE
     Indication: Depression
     Route: 048

REACTIONS (11)
  - Immune reconstitution inflammatory syndrome [Not Recovered/Not Resolved]
  - Staphylococcal bacteraemia [Recovered/Resolved]
  - Urinary tract infection [Recovered/Resolved]
  - Subarachnoid haemorrhage [Not Recovered/Not Resolved]
  - Hydrocephalus [Not Recovered/Not Resolved]
  - Brain oedema [Not Recovered/Not Resolved]
  - Cerebellar infarction [Not Recovered/Not Resolved]
  - Leukopenia [Recovered/Resolved]
  - COVID-19 [Recovered/Resolved]
  - Ruptured cerebral aneurysm [Not Recovered/Not Resolved]
  - Lymphopenia [Unknown]

NARRATIVE: CASE EVENT DATE: 20220201
